FAERS Safety Report 7986026-X (Version None)
Quarter: 2011Q4

REPORT INFORMATION
  Report Type: 
  Country: None (occurrence: None)
  Receive Date: 20111216
  Receipt Date: 20101229
  Transmission Date: 20120403
  Serious: No
  Sender: FDA-Public Use
  Company Number: US-BRISTOL-MYERS SQUIBB COMPANY-15464928

PATIENT
  Age: 31 Year
  Sex: Male
  Weight: 66 kg

DRUGS (3)
  1. TRAZODONE HCL [Concomitant]
     Dates: start: 20101201
  2. CELEXA [Concomitant]
     Dates: start: 20101201
  3. ABILIFY [Suspect]
     Indication: BIPOLAR DISORDER
     Dosage: USING FOR 2 YRS.

REACTIONS (1)
  - FEELING ABNORMAL [None]
